FAERS Safety Report 21322678 (Version 1)
Quarter: 2022Q3

REPORT INFORMATION
  Report Type: Report from Study
  Country: CO (occurrence: CO)
  Receive Date: 20220912
  Receipt Date: 20220912
  Transmission Date: 20221027
  Serious: Yes (Hospitalization, Other)
  Sender: FDA-Public Use
  Company Number: CO-BRISTOL-MYERS SQUIBB COMPANY-2022-103636

PATIENT
  Age: 48 Year
  Sex: Female
  Weight: 53 kg

DRUGS (1)
  1. ORENCIA [Suspect]
     Active Substance: ABATACEPT
     Indication: Rheumatoid arthritis
     Dosage: 125 MG/ML
     Route: 042
     Dates: start: 20150101

REACTIONS (3)
  - Nephrolithiasis [Not Recovered/Not Resolved]
  - Urinary tract infection [Unknown]
  - Intentional product use issue [Unknown]
